FAERS Safety Report 6532533-6 (Version None)
Quarter: 2010Q1

REPORT INFORMATION
  Report Type: 
  Country: None (occurrence: None)
  Receive Date: 20100111
  Receipt Date: 20091230
  Transmission Date: 20100710
  Serious: Yes (Life-Threatening, Other)
  Sender: FDA-Public Use
  Company Number: GB-JNJFOC-20091207913

PATIENT
  Age: 21 Year
  Sex: Male
  Weight: 69 kg

DRUGS (5)
  1. PARACETAMOL [Suspect]
  2. PARACETAMOL [Suspect]
     Indication: PREMEDICATION
  3. FABRAZYME [Suspect]
     Indication: FABRY'S DISEASE
     Route: 042
  4. FABRAZYME [Suspect]
     Dosage: FOR 1 AND A HALF WEEKS
     Route: 042
  5. CHLORPHENIRAMINE MALEATE [Concomitant]
     Indication: PREMEDICATION
     Route: 042

REACTIONS (1)
  - ANAPHYLACTIC REACTION [None]
